FAERS Safety Report 5964660-6 (Version None)
Quarter: 2008Q4

REPORT INFORMATION
  Report Type: 
  Country: None (occurrence: None)
  Receive Date: 20081125
  Receipt Date: 20081112
  Transmission Date: 20090506
  Serious: Yes (Death)
  Sender: FDA-Public Use
  Company Number: US-PFIZER INC-2008085249

PATIENT
  Age: 25 Year
  Sex: Female
  Weight: 71.2 kg

DRUGS (5)
  1. GEODON [Suspect]
     Indication: BIPOLAR I DISORDER
     Route: 048
     Dates: start: 20080516, end: 20080821
  2. GEODON [Suspect]
     Indication: SCHIZOAFFECTIVE DISORDER
  3. ABILIFY [Concomitant]
  4. LAMICTAL [Concomitant]
  5. ATIVAN [Concomitant]

REACTIONS (2)
  - COMPLETED SUICIDE [None]
  - OVERDOSE [None]
